FAERS Safety Report 7393782-0 (Version None)
Quarter: 2011Q2

REPORT INFORMATION
  Report Type: 
  Country: None (occurrence: None)
  Receive Date: 20110405
  Receipt Date: 20110324
  Transmission Date: 20111010
  Serious: No
  Sender: FDA-Public Use
  Company Number: US-ELI_LILLY_AND_COMPANY-US201012001695

PATIENT
  Age: 15 Year
  Sex: Male

DRUGS (4)
  1. AMBIEN [Concomitant]
     Dosage: 80 MG, UNK
  2. HYDROCODONE [Concomitant]
  3. STRATTERA [Suspect]
     Dosage: 1 UNK, UNK
  4. FLEXERIL [Concomitant]

REACTIONS (4)
  - LETHARGY [None]
  - DRUG ABUSE [None]
  - CONFUSIONAL STATE [None]
  - DIZZINESS [None]
